FAERS Safety Report 4291785-6 (Version None)
Quarter: 2004Q1

REPORT INFORMATION
  Report Type: 
  Country: None (occurrence: None)
  Receive Date: 20040211
  Receipt Date: 20030410
  Transmission Date: 20041129
  Serious: Yes (Hospitalization)
  Sender: FDA-Public Use
  Company Number: US-GLAXOSMITHKLINE-A0404535A

PATIENT
  Age: 41 Year
  Sex: Female

DRUGS (5)
  1. IMITREX [Suspect]
     Indication: MIGRAINE
     Route: 058
  2. IMITREX [Concomitant]
  3. FROVA [Concomitant]
  4. TOPAMAX [Concomitant]
  5. UNSPECIFIED MEDICATION [Concomitant]

REACTIONS (5)
  - DRUG INEFFECTIVE [None]
  - MIGRAINE [None]
  - PARAESTHESIA [None]
  - PHARMACEUTICAL PRODUCT COMPLAINT [None]
  - TINNITUS [None]
